FAERS Safety Report 8477252-4 (Version None)
Quarter: 2012Q2

REPORT INFORMATION
  Report Type: 
  Country: None (occurrence: None)
  Receive Date: 20120629
  Receipt Date: 20120621
  Transmission Date: 20120825
  Serious: Yes (Other)
  Sender: FDA-Public Use
  Company Number: KR-BAYER-2012-057741

PATIENT
  Sex: Female

DRUGS (4)
  1. MIRENA [Suspect]
     Indication: ANAEMIA
  2. MIRENA [Suspect]
     Indication: MENORRHAGIA
     Dosage: 20 MCG/24HR, CONT
     Route: 015
     Dates: start: 20120424
  3. MIRENA [Suspect]
     Indication: DYSMENORRHOEA
  4. YASMIN [Suspect]
     Indication: VAGINAL HAEMORRHAGE
     Dosage: UNK

REACTIONS (8)
  - DEPRESSED MOOD [None]
  - BACK PAIN [None]
  - VAGINAL INFECTION [None]
  - GENITAL HAEMORRHAGE [None]
  - DYSMENORRHOEA [None]
  - DEVICE DISLOCATION [None]
  - NO ADVERSE EVENT [None]
  - MENORRHAGIA [None]
